FAERS Safety Report 5394242-9 (Version None)
Quarter: 2007Q3

REPORT INFORMATION
  Report Type: 
  Country: None (occurrence: None)
  Receive Date: 20070723
  Receipt Date: 20070524
  Transmission Date: 20080115
  Serious: No
  Sender: FDA-Public Use
  Company Number: A0651041A

PATIENT
  Age: 20 Year
  Sex: Female
  Weight: 128.2 kg

DRUGS (2)
  1. AVANDIA [Suspect]
     Dosage: 4MG PER DAY
     Route: 048
     Dates: start: 20070413, end: 20070512
  2. METFORMIN HCL [Concomitant]
     Dosage: 1500MG PER DAY
     Dates: start: 20070126

REACTIONS (1)
  - ALOPECIA [None]
